FAERS Safety Report 12201296 (Version 1)
Quarter: 2016Q1

REPORT INFORMATION
  Report Type: Spontaneous
  Country: US (occurrence: US)
  Receive Date: 20160322
  Receipt Date: 20160322
  Transmission Date: 20160526
  Serious: No
  Sender: FDA-Public Use
  Company Number: US-SA-2015SA045365

PATIENT
  Age: 62 Year
  Sex: Female

DRUGS (2)
  1. NASACORT ALLERGY 24HR [Suspect]
     Active Substance: TRIAMCINOLONE ACETONIDE
     Indication: NASAL CONGESTION
     Dosage: TAKEN FROM: 1 WEEK AGO?DAILY DOSE: 2 SPRAY EVERY 24
     Route: 065
     Dates: end: 20150405
  2. NASACORT ALLERGY 24HR [Suspect]
     Active Substance: TRIAMCINOLONE ACETONIDE
     Indication: SWELLING
     Dosage: TAKEN FROM: 1 WEEK AGO?DAILY DOSE: 2 SPRAY EVERY 24
     Route: 065
     Dates: end: 20150405

REACTIONS (2)
  - Cough [Unknown]
  - Upper-airway cough syndrome [Not Recovered/Not Resolved]
